FAERS Safety Report 19093278 (Version 1)
Quarter: 2021Q2

REPORT INFORMATION
  Report Type: Spontaneous
  Country: IN (occurrence: IN)
  Receive Date: 20210405
  Receipt Date: 20210405
  Transmission Date: 20210717
  Serious: Yes (Death)
  Sender: FDA-Public Use
  Company Number: IN-PFIZER INC-2019520756

PATIENT
  Age: 53 Year
  Sex: Female

DRUGS (2)
  1. LETROZOLE. [Suspect]
     Active Substance: LETROZOLE
     Dosage: UNK
  2. PALBACE [Suspect]
     Active Substance: PALBOCICLIB
     Indication: BREAST CANCER METASTATIC
     Dosage: 125 MG, CYCLIC (21 DAY WITH 7 DAYS)
     Route: 048
     Dates: start: 20190809, end: 20200515

REACTIONS (2)
  - Death [Fatal]
  - White blood cell count decreased [Unknown]

NARRATIVE: CASE EVENT DATE: 2019
